FAERS Safety Report 23619255 (Version 1)
Quarter: 2024Q1

REPORT INFORMATION
  Report Type: Spontaneous
  Country: GB (occurrence: GB)
  Receive Date: 20240311
  Receipt Date: 20240311
  Transmission Date: 20240409
  Serious: Yes (Other)
  Sender: FDA-Public Use
  Company Number: GB-Vifor (International) Inc.-VIT-2023-09937

PATIENT
  Age: 78 Year
  Sex: Male
  Weight: 73.4 kg

DRUGS (40)
  1. TAVNEOS [Suspect]
     Active Substance: AVACOPAN
     Indication: Anti-neutrophil cytoplasmic antibody positive vasculitis
     Dosage: 30 MILLIGRAM, QD
     Route: 048
     Dates: start: 20230811, end: 20230822
  2. TAVNEOS [Suspect]
     Active Substance: AVACOPAN
     Dosage: 30 MILLIGRAM, QD
     Route: 048
     Dates: start: 20230822, end: 20230827
  3. TAVNEOS [Suspect]
     Active Substance: AVACOPAN
     Dosage: 30 MILLIGRAM, QD
     Route: 048
     Dates: start: 20230828
  4. CHLORPHENIRAMINE MALEATE [Concomitant]
     Active Substance: CHLORPHENIRAMINE MALEATE
     Indication: Product used for unknown indication
     Dosage: FREQUENCY: STANDARD OF PRE MEDICATION FOR RITUXIMAB TREATMENT, COMPLETION OF PLANNED COURSE
     Route: 065
     Dates: start: 20230810, end: 20230919
  5. IRON ISOMALTOSIDE 1000 [Concomitant]
     Active Substance: IRON ISOMALTOSIDE 1000
     Indication: Anaemia
     Dosage: SINGLE IV INFUSION
     Route: 042
     Dates: start: 20230814, end: 20230814
  6. FUROSEMIDE [Concomitant]
     Active Substance: FUROSEMIDE
     Indication: Atrial fibrillation
     Dosage: 40 MILLIGRAM, QD
     Route: 042
     Dates: start: 20230805, end: 20230807
  7. FUROSEMIDE [Concomitant]
     Active Substance: FUROSEMIDE
     Indication: Oedema peripheral
     Dosage: 40 MILLIGRAM, QD (ONGOING)
     Route: 048
     Dates: start: 20230817
  8. FUROSEMIDE [Concomitant]
     Active Substance: FUROSEMIDE
     Dosage: 40 MILLIGRAM, QD
     Route: 048
     Dates: start: 20231103
  9. METHYLPREDNISOLONE [Concomitant]
     Active Substance: METHYLPREDNISOLONE
     Indication: Product used for unknown indication
     Dosage: 0.5 GRAM (SINGLE IV INFUSION)
     Route: 042
     Dates: start: 20230805, end: 20230805
  10. METHYLPREDNISOLONE [Concomitant]
     Active Substance: METHYLPREDNISOLONE
     Dosage: 0.1 GRAM (FREQUENCY: STANDARD OF CARE PREMEDICATION PRIOR RITUXIMAB, COMPLETION OF PLANNED COURSE)
     Route: 042
     Dates: start: 20230810, end: 20230919
  11. ACETAMINOPHEN [Concomitant]
     Active Substance: ACETAMINOPHEN
     Indication: Pain assessment
     Dosage: STANDARD OF CARE MEDICATION PRIOR RITUXIMAB
     Route: 048
     Dates: start: 20230810, end: 20230919
  12. ACETAMINOPHEN [Concomitant]
     Active Substance: ACETAMINOPHEN
     Dosage: 1 GRAM (FOUR TIMES A DAY WHEN REQUIRED)
     Route: 048
     Dates: start: 20230901
  13. PIPERACILLIN SODIUM\TAZOBACTAM SODIUM [Concomitant]
     Active Substance: PIPERACILLIN SODIUM\TAZOBACTAM SODIUM
     Indication: Pneumonia
     Dosage: 4.5 GRAM, QD
     Route: 042
     Dates: start: 20230801, end: 20230813
  14. PREDNISOLONE [Concomitant]
     Active Substance: PREDNISOLONE
     Indication: Anti-neutrophil cytoplasmic antibody positive vasculitis
     Dosage: 40 MILLIGRAM, QD
     Route: 048
     Dates: start: 20230808, end: 20230814
  15. PREDNISOLONE [Concomitant]
     Active Substance: PREDNISOLONE
     Dosage: 10 MILLIGRAM, QD
     Route: 048
     Dates: start: 20230815, end: 20230821
  16. PREDNISOLONE [Concomitant]
     Active Substance: PREDNISOLONE
     Dosage: 5 MILLIGRAM, QD
     Route: 048
     Dates: start: 20230822, end: 20231013
  17. RITUXIMAB [Concomitant]
     Active Substance: RITUXIMAB
     Indication: Anti-neutrophil cytoplasmic antibody positive vasculitis
     Dosage: 1 GRAM (TWO SINGLE INFUSION)
     Route: 042
     Dates: start: 20230810, end: 20230919
  18. AMLODIPINE [Concomitant]
     Active Substance: AMLODIPINE BESYLATE
     Indication: Hypertension
     Dosage: 5 MILLIGRAM, QD (DISCONTINUED DUE TO LOW BP)
     Route: 048
     Dates: start: 20230811, end: 20230815
  19. ATORVASTATIN [Concomitant]
     Active Substance: ATORVASTATIN
     Indication: Prophylaxis
     Dosage: 80 MILLIGRAM, QD
     Route: 048
     Dates: start: 20180122, end: 20230821
  20. ATORVASTATIN [Concomitant]
     Active Substance: ATORVASTATIN
     Dosage: 80 MILLIGRAM, QD
     Route: 048
     Dates: start: 20230830
  21. CALCIUM CARBONATE\CHOLECALCIFEROL [Concomitant]
     Active Substance: CALCIUM CARBONATE\CHOLECALCIFEROL
     Indication: Prophylaxis
     Dosage: 1.5 GRAM PLUS 10 MICROGRAM PER EFFERVESCENT TABLET
     Route: 048
     Dates: start: 20230805, end: 20231013
  22. CALCIUM CARBONATE\CHOLECALCIFEROL [Concomitant]
     Active Substance: CALCIUM CARBONATE\CHOLECALCIFEROL
     Dosage: 1.5 GRAM PLUS 10 MICROGRAM PER EFFERVESCENT TABLET
     Route: 048
     Dates: start: 20231014
  23. COTRIMOXAZOLE [Concomitant]
     Active Substance: SULFAMETHOXAZOLE\TRIMETHOPRIM
     Indication: Prophylaxis
     Dosage: 4.8 GRAM, QWK
     Route: 048
     Dates: start: 20230814
  24. DALTEPARIN [Concomitant]
     Active Substance: DALTEPARIN
     Indication: Thrombosis prophylaxis
     Dosage: 1 DOSAGE FORM, QD
     Route: 058
     Dates: start: 20230809, end: 20230814
  25. DALTEPARIN [Concomitant]
     Active Substance: DALTEPARIN
     Dosage: UNK
     Route: 058
     Dates: start: 20230822, end: 202308
  26. INSULIN ASPART [Concomitant]
     Active Substance: INSULIN ASPART
     Indication: Type 2 diabetes mellitus
     Dosage: SOLOSTAR PRE-FILLED PEN 100 UNITS/ML, TOOK BASED ON BLOOD GLUCOSE READINGS
     Route: 058
     Dates: start: 20230809, end: 20230817
  27. INSULIN ASPART [Concomitant]
     Active Substance: INSULIN ASPART
     Dosage: 14 INTERNATIONAL UNIT, QD
     Route: 058
     Dates: start: 20230818
  28. LANSOPRAZOLE [Concomitant]
     Active Substance: LANSOPRAZOLE
     Indication: Gastrointestinal disorder prophylaxis
     Dosage: 30 MILLIGRAM, QD
     Route: 048
     Dates: start: 20180122
  29. LATANOPROST [Concomitant]
     Active Substance: LATANOPROST
     Indication: Glaucoma
     Dosage: 1 DROP, QD
     Dates: start: 20130618
  30. EUMOVATE [Concomitant]
     Active Substance: CLOBETASONE BUTYRATE
     Indication: Pruritus
     Route: 061
     Dates: start: 20190115
  31. LERCANIDIPINE [Concomitant]
     Active Substance: LERCANIDIPINE
     Indication: Hypertension
     Dosage: 10 MILLIGRAM, QD
     Route: 048
     Dates: start: 20230817, end: 20230821
  32. LERCANIDIPINE [Concomitant]
     Active Substance: LERCANIDIPINE
     Dosage: 10 MILLIGRAM, QD
     Route: 048
     Dates: start: 20230830
  33. LINAGLIPTIN [Concomitant]
     Active Substance: LINAGLIPTIN
     Indication: Type 2 diabetes mellitus
     Dosage: 5 MILLIGRAM, QD
     Route: 048
     Dates: start: 20221206
  34. METFORMIN [Concomitant]
     Active Substance: METFORMIN HYDROCHLORIDE
     Indication: Type 2 diabetes mellitus
     Dosage: 0.5 GRAM, QD
     Route: 048
     Dates: start: 20230804, end: 20231103
  35. NYSTATIN [Concomitant]
     Active Substance: NYSTATIN
     Indication: Prophylaxis
     Dosage: 1 MILLILITER, QD
     Route: 048
     Dates: start: 20230810, end: 20230816
  36. CARBOXYMETHYLCELLULOSE [Concomitant]
     Active Substance: CARBOXYMETHYLCELLULOSE
     Indication: Dry eye
     Dosage: FOUR TIMES A DAY WHEN REQUIRED (OPHTHALMIC)
     Route: 065
     Dates: start: 20231115
  37. CETIRIZINE [Concomitant]
     Active Substance: CETIRIZINE HYDROCHLORIDE
     Indication: Pruritus
     Dosage: 10 MILLIGRAM
     Route: 048
     Dates: start: 202308
  38. EDOXABAN [Concomitant]
     Active Substance: EDOXABAN
     Indication: Atrial fibrillation
     Dosage: 30 MILLIGRAM, QD
     Route: 048
     Dates: start: 20231103
  39. RAMIPRIL [Concomitant]
     Active Substance: RAMIPRIL
     Indication: Hypertension
     Dosage: 5 MILLIGRAM, QD
     Route: 048
     Dates: start: 20231103
  40. SERTRALINE [Concomitant]
     Active Substance: SERTRALINE HYDROCHLORIDE
     Indication: Anxiety
     Dosage: 0.1 GRAM, QD
     Route: 048
     Dates: start: 20130904

REACTIONS (3)
  - Neuropathy peripheral [Recovering/Resolving]
  - COVID-19 [Recovered/Resolved]
  - Hypotension [Unknown]

NARRATIVE: CASE EVENT DATE: 20230801
